FAERS Safety Report 9501661 (Version 2)
Quarter: 2013Q3

REPORT INFORMATION
  Report Type: Report from Study
  Country: US (occurrence: US)
  Receive Date: 20130905
  Receipt Date: 20130905
  Transmission Date: 20140515
  Serious: Yes (Hospitalization)
  Sender: FDA-Public Use
  Company Number: US-BRISTOL-MYERS SQUIBB COMPANY-18882050

PATIENT
  Age: 79 Year
  Sex: Female
  Weight: 54.9 kg

DRUGS (5)
  1. SPRYCEL [Suspect]
     Indication: ACUTE LYMPHOCYTIC LEUKAEMIA
     Dosage: LAST DOSE-08APR2013,10JUL2013?2100MG
     Route: 048
     Dates: start: 20120322
  2. DEXAMETHASONE [Suspect]
     Indication: ACUTE LYMPHOCYTIC LEUKAEMIA
     Dosage: ORAL OR IV?LAST DOSE:31MAR2013,24JUN2013?50MG
     Dates: start: 20120322
  3. VINCRISTINE SULFATE [Suspect]
     Indication: ACUTE LYMPHOCYTIC LEUKAEMIA
     Dosage: LAST DOSE:27MAR2013,20JUN2013?2MG
     Route: 042
     Dates: start: 20120322
  4. METHOTREXATE [Suspect]
     Indication: ACUTE LYMPHOCYTIC LEUKAEMIA
     Dosage: LAST DOSE:03APR2013,04JUL2013?45MG
     Dates: start: 20120322
  5. 6-MERCAPTOPURINE [Suspect]
     Indication: ACUTE LYMPHOCYTIC LEUKAEMIA
     Dosage: LAST DOSE:08APR2013,10JUN2013?1050MG
     Route: 048
     Dates: start: 20120322

REACTIONS (3)
  - Dyspnoea [Not Recovered/Not Resolved]
  - Pleural effusion [Not Recovered/Not Resolved]
  - Hypoxia [Recovering/Resolving]
